FAERS Safety Report 7149381-9 (Version None)
Quarter: 2010Q4

REPORT INFORMATION
  Report Type: 
  Country: None (occurrence: None)
  Receive Date: 20101209
  Receipt Date: 20101206
  Transmission Date: 20110411
  Serious: Yes (Death, Life-Threatening, Hospitalization, Other)
  Sender: FDA-Public Use
  Company Number: US-CELGENEUS-163-21880-10090961

PATIENT
  Sex: Female

DRUGS (32)
  1. REVLIMID [Suspect]
     Indication: MYELODYSPLASTIC SYNDROME
     Route: 048
     Dates: start: 20100801, end: 20100825
  2. KLOR-CON [Concomitant]
     Route: 065
     Dates: start: 20100106
  3. PRAVASTATIN [Concomitant]
     Route: 065
     Dates: start: 20100106
  4. GLIMEPIRIDE [Concomitant]
     Route: 065
     Dates: start: 20100106
  5. METFORMIN HCL [Concomitant]
     Route: 065
     Dates: start: 20100106
  6. OMEPRAZOLE [Concomitant]
     Route: 065
     Dates: start: 20100106
  7. VENLAFAXINE HCL [Concomitant]
     Route: 065
     Dates: start: 20100106
  8. VENLAFAXINE HCL [Concomitant]
     Route: 065
  9. SINGULAIR [Concomitant]
     Route: 065
     Dates: start: 20100106
  10. ZYRTEC [Concomitant]
     Route: 065
     Dates: start: 20100106
  11. ASPIRIN [Concomitant]
     Route: 065
     Dates: start: 20100106
  12. CALCIUM + VIT D [Concomitant]
     Route: 065
     Dates: start: 20100106
  13. ADVAIR DISKUS 100/50 [Concomitant]
     Dosage: 500/50
     Route: 065
     Dates: start: 20100106
  14. ALLOPURINOL [Concomitant]
     Route: 065
     Dates: start: 20100106
  15. MULTIPLE VIT [Concomitant]
     Route: 065
     Dates: start: 20100125
  16. TRAZODONE [Concomitant]
     Route: 065
     Dates: start: 20100125
  17. ZOFRAN [Concomitant]
     Route: 048
     Dates: start: 20100201
  18. VERAPAMIL [Concomitant]
     Dosage: 240
     Route: 065
     Dates: start: 20100519
  19. FLUTICASONE PROPIONATE [Concomitant]
     Dosage: 2 PUFF
     Route: 045
     Dates: start: 20100519
  20. MAG OXIDE [Concomitant]
     Route: 065
     Dates: start: 20100519
  21. ZINC [Concomitant]
     Route: 065
     Dates: start: 20100519
  22. VIT D [Concomitant]
     Dosage: 2000 U
     Route: 065
     Dates: start: 20100519
  23. MUCINEX [Concomitant]
     Dosage: 1-2
     Route: 065
     Dates: start: 20100519
  24. POLYGAM S/D [Concomitant]
     Route: 065
     Dates: start: 20100519
  25. LUTEIN [Concomitant]
     Route: 065
     Dates: start: 20100519
  26. PREDNISONE [Concomitant]
     Route: 065
     Dates: start: 20100618
  27. MAGIC MOUTHWASH [Concomitant]
     Route: 065
     Dates: start: 20100618
  28. FUROSEMIDE [Concomitant]
     Route: 065
     Dates: start: 20100618
  29. ALBUTEROL [Concomitant]
     Dosage: 2 PUFFS
     Route: 065
  30. OXYGEN [Concomitant]
     Route: 055
  31. PLATELETS [Concomitant]
     Route: 065
  32. ANTIBIOTICS [Concomitant]
     Route: 065

REACTIONS (6)
  - MYELODYSPLASTIC SYNDROME [None]
  - PLATELET COUNT DECREASED [None]
  - PNEUMOTHORAX [None]
  - PULMONARY HAEMORRHAGE [None]
  - RESPIRATORY FAILURE [None]
  - SEPSIS [None]
